FAERS Safety Report 6998758-0 (Version None)
Quarter: 2010Q3

REPORT INFORMATION
  Report Type: 
  Country: None (occurrence: None)
  Receive Date: 20100920
  Receipt Date: 20100716
  Transmission Date: 20110219
  Serious: No
  Sender: FDA-Public Use
  Company Number: US-ASTRAZENECA-2010SE33413

PATIENT
  Sex: Female
  Weight: 88.9 kg

DRUGS (6)
  1. SEROQUEL [Suspect]
     Indication: NERVOUSNESS
     Route: 048
     Dates: start: 20040101, end: 20090101
  2. PREVACID [Concomitant]
     Indication: REFLUX OESOPHAGITIS
  3. ATENOLOL [Concomitant]
     Indication: HYPERTENSION
  4. ACIPHEX [Concomitant]
     Indication: REFLUX OESOPHAGITIS
  5. LYRICA [Concomitant]
     Indication: PAIN
  6. KLONOPIN [Concomitant]

REACTIONS (3)
  - DERMATITIS PSORIASIFORM [None]
  - DIABETES MELLITUS [None]
  - POLLAKIURIA [None]
